FAERS Safety Report 5892605-6 (Version None)
Quarter: 2008Q3

REPORT INFORMATION
  Report Type: 
  Country: None (occurrence: None)
  Receive Date: 20080923
  Receipt Date: 20080911
  Transmission Date: 20090109
  Serious: Yes (Other)
  Sender: FDA-Public Use
  Company Number: US-ROCHE-573937

PATIENT
  Sex: Male

DRUGS (3)
  1. PEG-INTERFERON A-2A (RO 25-8310) [Suspect]
     Dosage: FORM REPORTED AS: PREFILLED SYRINGE
     Route: 065
     Dates: start: 20080620
  2. RIBAVIRIN [Suspect]
     Dosage: DIVIDED DOSES
     Route: 065
     Dates: start: 20080620
  3. FLUCONAZOLE [Concomitant]
     Indication: COCCIDIOIDOMYCOSIS

REACTIONS (2)
  - LUNG NEOPLASM [None]
  - PYREXIA [None]
